FAERS Safety Report 9586249 (Version 3)
Quarter: 2013Q4

REPORT INFORMATION
  Report Type: Spontaneous
  Country: JP (occurrence: JP)
  Receive Date: 20131003
  Receipt Date: 20131022
  Transmission Date: 20140711
  Serious: Yes (Other)
  Sender: FDA-Public Use
  Company Number: JP-UCBSA-099037

PATIENT
  Age: 33 Year
  Sex: Male

DRUGS (1)
  1. XYZAL [Suspect]
     Indication: URTICARIA
     Route: 048
     Dates: start: 20130909, end: 20130914

REACTIONS (4)
  - Renal impairment [Unknown]
  - Hepatic function abnormal [Unknown]
  - Oedema peripheral [Recovered/Resolved]
  - Face oedema [Recovered/Resolved]
